FAERS Safety Report 6691539-7 (Version None)
Quarter: 2010Q2

REPORT INFORMATION
  Report Type: 
  Country: None (occurrence: None)
  Receive Date: 20100422
  Receipt Date: 20100416
  Transmission Date: 20101027
  Serious: Yes (Death, Hospitalization)
  Sender: FDA-Public Use
  Company Number: NL-CELGENEUS-114-21880-10032597

PATIENT
  Sex: Female
  Weight: 65 kg

DRUGS (3)
  1. REVLIMID [Suspect]
     Route: 048
     Dates: start: 20100226, end: 20100317
  2. TRAMADOL HCL [Concomitant]
     Indication: BACK PAIN
     Route: 048
     Dates: start: 20100210
  3. CIPROXIN [Concomitant]
     Indication: PROPHYLAXIS
     Route: 048
     Dates: start: 20100324

REACTIONS (4)
  - CARDIAC ASTHMA [None]
  - CHEST PAIN [None]
  - DYSPNOEA [None]
  - LUNG INFECTION [None]
